FAERS Safety Report 6616742 (Version 2)
Quarter: 2013Q1

REPORT INFORMATION
  Report Type: Spontaneous
  Country: PL (occurrence: None)
  Receive Date: 20080404
  Receipt Date: 20121026
  Transmission Date: 20140127
  Serious: No
  Sender: FDA-Public Use
  Company Number: THQ2008A00579

PATIENT
  Age: 61 Year
  Sex: Female

DRUGS (1)
  1. LANSOPRAZOLE (LANSOPRAZOLE) [Suspect]

REACTIONS (2)
  - Cutaneous lupus erythematosus [None]
  - Rheumatoid factor positive [None]
